FAERS Safety Report 13554990 (Version 1)
Quarter: 2017Q2

REPORT INFORMATION
  Report Type: Spontaneous
  Country: US (occurrence: US)
  Receive Date: 20170516
  Receipt Date: 20170516
  Transmission Date: 20170830
  Serious: Yes (Hospitalization)
  Sender: FDA-Public Use
  Company Number: None

PATIENT
  Age: 61 Year
  Sex: Male
  Weight: 97 kg

DRUGS (1)
  1. GABAPENTIN. [Suspect]
     Active Substance: GABAPENTIN
     Indication: NEUROPATHY PERIPHERAL
     Dosage: MG TID PO
     Route: 048
     Dates: start: 20160321, end: 20160401

REACTIONS (4)
  - Dehydration [None]
  - Chronic kidney disease [None]
  - Diarrhoea [None]
  - Acute kidney injury [None]

NARRATIVE: CASE EVENT DATE: 20160401
